FAERS Safety Report 7325656-5 (Version None)
Quarter: 2011Q1

REPORT INFORMATION
  Report Type: 
  Country: None (occurrence: None)
  Receive Date: 20110302
  Receipt Date: 20110223
  Transmission Date: 20110831
  Serious: Yes (Hospitalization, Other)
  Sender: FDA-Public Use
  Company Number: ES-PFIZER INC-2011039480

PATIENT
  Age: 63 Year
  Sex: Female

DRUGS (1)
  1. EPANUTIN [Suspect]
     Indication: PARTIAL SEIZURES
     Dosage: 200 MG, 2X/DAY
     Route: 048
     Dates: start: 20100101, end: 20101024

REACTIONS (3)
  - ATAXIA [None]
  - ANTICONVULSANT DRUG LEVEL ABOVE THERAPEUTIC [None]
  - DYSARTHRIA [None]
